FAERS Safety Report 25143841 (Version 1)
Quarter: 2025Q2

REPORT INFORMATION
  Report Type: Spontaneous
  Country: ES (occurrence: ES)
  Receive Date: 20250401
  Receipt Date: 20250401
  Transmission Date: 20250717
  Serious: Yes (Other)
  Sender: BIOLOGICAL E.
  Company Number: ES-BELUSA-2025BELLIT0018

PATIENT

DRUGS (1)
  1. ENOXAPARIN SODIUM [Suspect]
     Active Substance: ENOXAPARIN SODIUM
     Indication: Postoperative thrombosis
     Dosage: 8MG/12H SUBCUTANEOUS

REACTIONS (3)
  - Intestinal obstruction [Recovered/Resolved]
  - Intestinal ischaemia [Recovered/Resolved]
  - Intestinal haematoma [Recovered/Resolved]
